FAERS Safety Report 11144915 (Version 2)
Quarter: 2015Q3

REPORT INFORMATION
  Report Type: Report from Study
  Country: US (occurrence: US)
  Receive Date: 20150528
  Receipt Date: 20150914
  Transmission Date: 20151125
  Serious: Yes (Hospitalization)
  Sender: FDA-Public Use
  Company Number: US-BIOGENIDEC-2015BI070836

PATIENT
  Age: 56 Year
  Sex: Female

DRUGS (24)
  1. BIOTIN [Concomitant]
     Active Substance: BIOTIN
  2. LOSARTAN POTASSIUM. [Concomitant]
     Active Substance: LOSARTAN POTASSIUM
  3. FISH OIL [Concomitant]
     Active Substance: FISH OIL
  4. VITAMIN C [Concomitant]
     Active Substance: ASCORBIC ACID
  5. VITAMIN D3 [Concomitant]
     Active Substance: CHOLECALCIFEROL
  6. SERTRALINE [Concomitant]
     Active Substance: SERTRALINE HYDROCHLORIDE
  7. BENADRYL [Concomitant]
     Active Substance: DIPHENHYDRAMINE HYDROCHLORIDE
  8. ZIPRASIDONE. [Concomitant]
     Active Substance: ZIPRASIDONE
  9. GLUCOSOMINE [Concomitant]
  10. FOLIC ACID. [Concomitant]
     Active Substance: FOLIC ACID
  11. SIMVASTATIN. [Concomitant]
     Active Substance: SIMVASTATIN
  12. CHLORTHALIDONE. [Concomitant]
     Active Substance: CHLORTHALIDONE
  13. TECFIDERA [Suspect]
     Active Substance: DIMETHYL FUMARATE
     Indication: MULTIPLE SCLEROSIS
     Route: 048
     Dates: start: 20150506, end: 20150509
  14. TIZIDINE [Concomitant]
  15. TECFIDERA [Suspect]
     Active Substance: DIMETHYL FUMARATE
     Indication: MULTIPLE SCLEROSIS
     Route: 048
     Dates: end: 20150512
  16. BACLOFEN. [Concomitant]
     Active Substance: BACLOFEN
  17. VITAMIN E [Concomitant]
     Active Substance: .ALPHA.-TOCOPHEROL
  18. MILK THISTLE [Concomitant]
     Active Substance: MILK THISTLE
  19. TECFIDERA [Suspect]
     Active Substance: DIMETHYL FUMARATE
     Indication: MULTIPLE SCLEROSIS
     Route: 048
     Dates: start: 20150513
  20. VITAMIN B12 [Concomitant]
     Active Substance: CYANOCOBALAMIN
  21. LECITHIN [Concomitant]
     Active Substance: LECITHIN
  22. DIAZEPAM. [Concomitant]
     Active Substance: DIAZEPAM
  23. K-DUR [Concomitant]
     Active Substance: POTASSIUM CHLORIDE
  24. GARLIC. [Concomitant]
     Active Substance: GARLIC

REACTIONS (5)
  - Therapy cessation [Recovered/Resolved]
  - Loss of control of legs [Recovered/Resolved]
  - Muscular weakness [Unknown]
  - Post-traumatic stress disorder [Unknown]
  - Constipation [Unknown]

NARRATIVE: CASE EVENT DATE: 20150509
